FAERS Safety Report 7298573-7 (Version None)
Quarter: 2011Q1

REPORT INFORMATION
  Report Type: 
  Country: None (occurrence: None)
  Receive Date: 20110217
  Receipt Date: 20110202
  Transmission Date: 20110831
  Serious: Yes (Hospitalization)
  Sender: FDA-Public Use
  Company Number: US-PFIZER INC-2011013902

PATIENT
  Sex: Male
  Weight: 78.9 kg

DRUGS (9)
  1. NERATINIB [Suspect]
     Indication: NON-SMALL CELL LUNG CANCER
     Dosage: 160 MG, 1X/DAY
     Route: 048
     Dates: start: 20110110, end: 20110118
  2. OXYCODONE [Concomitant]
     Indication: PAIN MANAGEMENT
     Dosage: UNK
     Dates: start: 20110103
  3. TEMSIROLIMUS [Suspect]
     Indication: NON-SMALL CELL LUNG CANCER
     Dosage: 75 MG, WEEKLY
     Route: 042
     Dates: start: 20110110, end: 20110118
  4. WARFARIN SODIUM [Concomitant]
     Dosage: UNK
     Dates: start: 20090319, end: 20110101
  5. NERATINIB [Suspect]
     Dosage: 120
     Dates: start: 20110131
  6. COLACE [Concomitant]
     Indication: CONSTIPATION
     Dosage: UNK
     Dates: start: 20110110
  7. OXYCONTIN [Concomitant]
     Indication: PAIN MANAGEMENT
     Dosage: UNK
     Dates: start: 20110110
  8. TEMSIROLIMUS [Suspect]
     Dosage: 50
     Dates: start: 20110131
  9. COMPAZINE [Concomitant]
     Indication: PROPHYLAXIS OF NAUSEA AND VOMITING
     Dosage: UNK
     Dates: start: 20110103

REACTIONS (4)
  - EPISTAXIS [None]
  - DEEP VEIN THROMBOSIS [None]
  - INTERNATIONAL NORMALISED RATIO INCREASED [None]
  - DIARRHOEA [None]
